FAERS Safety Report 23773426 (Version 1)
Quarter: 2024Q2

REPORT INFORMATION
  Report Type: Spontaneous
  Country: US (occurrence: US)
  Receive Date: 20240423
  Receipt Date: 20240423
  Transmission Date: 20240715
  Serious: Yes (Hospitalization)
  Sender: FDA-Public Use
  Company Number: US-GRANULES-US-2024GRALIT00121

PATIENT
  Age: 19 Year

DRUGS (1)
  1. BUPROPION HYDROCHLORIDE [Suspect]
     Active Substance: BUPROPION HYDROCHLORIDE
     Indication: Product used for unknown indication
     Route: 048

REACTIONS (7)
  - Disorientation [Recovered/Resolved]
  - Speech disorder [Recovered/Resolved]
  - Eye movement disorder [Recovered/Resolved]
  - Dysphonia [Recovered/Resolved]
  - Agitation [Recovered/Resolved]
  - Tremor [Recovered/Resolved]
  - Intentional overdose [Unknown]
